FAERS Safety Report 9870106 (Version 1)
Quarter: 2014Q1

REPORT INFORMATION
  Report Type: Spontaneous
  Country: SZ (occurrence: None)
  Receive Date: 20140131
  Receipt Date: 20140131
  Transmission Date: 20141002
  Serious: Yes (Hospitalization)
  Sender: FDA-Public Use
  Company Number: 2014CH010287

PATIENT
  Age: 60 Year
  Sex: Male

DRUGS (36)
  1. ALOXI [Suspect]
     Indication: PROPHYLAXIS OF NAUSEA AND VOMITING
     Route: 041
     Dates: start: 20131119, end: 20131119
  2. ENDOXAN [Suspect]
     Indication: CHEMOTHERAPY
     Route: 041
     Dates: start: 20131119, end: 20131120
  3. BUSULFAN [Suspect]
     Indication: CHEMOTHERAPY
     Route: 041
     Dates: start: 20131121, end: 20131121
  4. ATG FRESENIUS [Suspect]
     Indication: CHEMOTHERAPY
     Route: 041
     Dates: start: 20131122, end: 20131122
  5. METHOTREXATE [Suspect]
     Indication: CHEMOTHERAPY
     Dates: start: 20131129, end: 20131202
  6. SANDIMUN [Suspect]
     Route: 041
     Dates: start: 20131124, end: 20131126
  7. SOLU-MEDROL [Suspect]
     Indication: PROPHYLAXIS
     Route: 041
     Dates: start: 20131122, end: 20131124
  8. AMIKIN [Suspect]
     Indication: BACTERIAL INFECTION
     Route: 041
     Dates: start: 20131123, end: 20131125
  9. NOPIL [Suspect]
     Dosage: 1 DF, 3/WEEK, ORAL
     Route: 048
     Dates: start: 201311
  10. CEFEPI(CEFEPIME) [Suspect]
     Indication: BACTERIAL INFECTION
     Route: 041
     Dates: start: 20131123, end: 20131129
  11. DIFLUCAN [Suspect]
     Indication: PROPHYLAXIS
     Route: 048
     Dates: start: 201311
  12. VALTREX (VALACICLOVIR HYDROCHLORIDE) [Suspect]
     Indication: PROPHYLAXIS
     Route: 048
     Dates: start: 20131118
  13. LASIX (FUROSEMIDE) [Suspect]
     Indication: DIURETIC THERAPY
     Dates: start: 20131119, end: 20131203
  14. PANTOZOL [Suspect]
     Indication: PROPHYLAXIS
     Route: 048
     Dates: start: 20131118, end: 20131201
  15. ZYLORIC [Suspect]
     Indication: GOUT
     Route: 048
     Dates: start: 20131118, end: 20131126
  16. UROMITEXAN (MESNA) [Suspect]
     Indication: PROPHYLAXIS
     Dates: start: 20131119, end: 20131120
  17. EMEND (APREPITANT) [Suspect]
     Indication: PROPHYLAXIS OF NAUSEA AND VOMITING
     Dates: start: 20131119, end: 20131119
  18. MERONEM [Suspect]
     Indication: BACTERIAL INFECTION
     Dates: start: 20131202
  19. ZOVIRAX (ACICLOVIR) [Suspect]
     Indication: PROPHYLAXIS
     Dates: start: 20131201, end: 20131201
  20. ATORVASTATIN (ATORVASTATIN) [Suspect]
     Indication: HYPERLIPIDAEMIA
     Route: 048
     Dates: start: 20131118, end: 20131118
  21. ASPIRIN (ACETYLSALICYLIC ACID) [Suspect]
     Indication: PROPHYLAXIS
     Route: 048
     Dates: start: 20131118, end: 20131122
  22. FLAMON [Suspect]
     Indication: ESSENTIAL HYPERTENSION
     Route: 048
     Dates: start: 20131118, end: 20131127
  23. TRIATEC [Suspect]
     Indication: ESSENTIAL HYPERTENSION
     Route: 048
     Dates: start: 20131122
  24. SOLU-CORTEF [Suspect]
     Indication: PROPHYLAXIS
     Dates: start: 20131128, end: 20131128
  25. TAZOBAC [Suspect]
     Indication: BACTERIAL INFECTION
     Dates: start: 20131129, end: 20131201
  26. TRANDATE [Suspect]
     Indication: ESSENTIAL HYPERTENSION
     Dates: start: 20131201, end: 20131203
  27. TAVEGYL [Concomitant]
  28. FORTECORTIN [Concomitant]
  29. HEPARIN (HEPARIN) [Concomitant]
  30. PASPERTIN (METOCLOPRAMIDE HYDROCHLORIDE) [Concomitant]
  31. FLATULEX (SIMETICONE) [Concomitant]
  32. DUSPATALIN [Concomitant]
  33. LAXOBERON (SODIUM PICOSULFATE) [Concomitant]
  34. LEUCOVORIN (FOLINIC ACID) [Concomitant]
  35. URSOFALK [Concomitant]
  36. DEFIBROTIDE [Concomitant]

REACTIONS (4)
  - Jaundice [None]
  - Aspartate aminotransferase increased [None]
  - Stem cell transplant [None]
  - Haemolysis [None]
